FAERS Safety Report 21015221 (Version 2)
Quarter: 2022Q3

REPORT INFORMATION
  Report Type: Spontaneous
  Country: IT (occurrence: IT)
  Receive Date: 20220628
  Receipt Date: 20220727
  Transmission Date: 20221026
  Serious: Yes (Life-Threatening, Hospitalization, Other)
  Sender: FDA-Public Use
  Company Number: IT-ALKEM LABORATORIES LIMITED-IT-ALKEM-2022-06489

PATIENT
  Age: 70 Year
  Sex: Female

DRUGS (2)
  1. LINEZOLID [Suspect]
     Active Substance: LINEZOLID
     Indication: Postoperative wound infection
     Dosage: 600 MILLIGRAM, BID (EVERY 12 HOURS)
     Route: 065
     Dates: start: 202005, end: 20200627
  2. TIGECYCLINE [Concomitant]
     Active Substance: TIGECYCLINE
     Indication: Postoperative wound infection
     Dosage: 50 MILLIGRAM, BID (EVERY 12 HOUR)
     Route: 065
     Dates: start: 20200525

REACTIONS (9)
  - Toxicity to various agents [Unknown]
  - Haematotoxicity [Recovered/Resolved]
  - Thrombocytopenia [Recovered/Resolved]
  - Metabolic acidosis [Recovered/Resolved]
  - Hypoglycaemia [Recovered/Resolved]
  - Lactic acidosis [Recovered/Resolved]
  - Hypocapnia [Recovered/Resolved]
  - Mitochondrial toxicity [Recovered/Resolved]
  - International normalised ratio increased [Recovered/Resolved]

NARRATIVE: CASE EVENT DATE: 20200601
